FAERS Safety Report 11681398 (Version 1)
Quarter: 2015Q4

REPORT INFORMATION
  Report Type: Spontaneous
  Country: US (occurrence: None)
  Receive Date: 20151028
  Receipt Date: 20151028
  Transmission Date: 20160304
  Serious: Yes (Disabling, Other)
  Sender: FDA-Public Use
  Company Number: None

PATIENT
  Age: 84 Year
  Sex: Female
  Weight: 168 kg

DRUGS (10)
  1. LISINOPRIL. [Concomitant]
     Active Substance: LISINOPRIL
  2. NOVOLIN N [Concomitant]
     Active Substance: INSULIN HUMAN
  3. ASPIRIN. [Concomitant]
     Active Substance: ASPIRIN
  4. BIOTIN [Concomitant]
     Active Substance: BIOTIN
  5. VITB12 [Concomitant]
  6. CHLRONDOITIN [Concomitant]
  7. ATENOLOL. [Suspect]
     Active Substance: ATENOLOL
     Indication: HYPERTENSION
     Dosage: BY MOUTH
     Dates: start: 201004, end: 20150107
  8. AMLODIPINE BESYLATE. [Concomitant]
     Active Substance: AMLODIPINE BESYLATE
  9. EQUATE MULTIVITAMIN [Concomitant]
  10. GLUCOSAMINE [Concomitant]
     Active Substance: GLUCOSAMINE

REACTIONS (6)
  - Muscle spasms [None]
  - Myalgia [None]
  - Swelling [None]
  - Pain [None]
  - Asthenia [None]
  - Musculoskeletal stiffness [None]

NARRATIVE: CASE EVENT DATE: 20141020
